FAERS Safety Report 6138419-3 (Version None)
Quarter: 2009Q1

REPORT INFORMATION
  Report Type: 
  Country: None (occurrence: None)
  Receive Date: 20090331
  Receipt Date: 20090323
  Transmission Date: 20090719
  Serious: Yes (Hospitalization)
  Sender: FDA-Public Use
  Company Number: US-ELI_LILLY_AND_COMPANY-US200903005674

PATIENT
  Sex: Male

DRUGS (3)
  1. HUMALOG [Suspect]
     Indication: TYPE 2 DIABETES MELLITUS
     Dates: start: 20020101
  2. BENICAR [Concomitant]
     Dosage: 40 MG, DAILY (1/D)
  3. CHLORTHALIDONE [Concomitant]
     Dosage: 25 MG, DAILY (1/D)

REACTIONS (4)
  - COLITIS [None]
  - GALLBLADDER OPERATION [None]
  - PRODUCT QUALITY ISSUE [None]
  - VISUAL IMPAIRMENT [None]
